FAERS Safety Report 5414872-5 (Version None)
Quarter: 2007Q3

REPORT INFORMATION
  Report Type: 
  Country: None (occurrence: None)
  Receive Date: 20070815
  Receipt Date: 20070809
  Transmission Date: 20080115
  Serious: Yes (Other)
  Sender: FDA-Public Use
  Company Number: PHNU2007DE01128

PATIENT
  Sex: Female

DRUGS (8)
  1. ZOMETA [Suspect]
     Indication: MULTIPLE MYELOMA
     Dosage: 4 MG, QMO
     Dates: start: 20050811, end: 20070115
  2. VINCRISTINE [Concomitant]
     Indication: PLASMACYTOMA
     Dosage: 0.4 MG, UNK
     Route: 042
     Dates: start: 20050711, end: 20051013
  3. ADRIAMYCIN PFS [Concomitant]
     Indication: PLASMACYTOMA
     Dosage: 13.4 MG, UNK
     Route: 042
     Dates: start: 20050711, end: 20051013
  4. BORTEZOMIB [Concomitant]
     Indication: PLASMACYTOMA
     Dosage: 1.98 MG, UNK
     Route: 042
     Dates: start: 20060110, end: 20060228
  5. BORTEZOMIB [Concomitant]
     Dosage: 1.38 MG, UNK
     Route: 042
     Dates: start: 20060328, end: 20070514
  6. DEXAMETHASONE 0.5MG TAB [Concomitant]
     Indication: VOMITING
     Dosage: 40 MG, QD
     Route: 048
     Dates: start: 20050711, end: 20051029
  7. DEXAMETHASONE 0.5MG TAB [Concomitant]
     Indication: PLASMACYTOMA
     Dosage: 16 MG, QD
     Route: 042
     Dates: start: 20060328, end: 20070514
  8. DEXAMETHASONE 0.5MG TAB [Concomitant]
     Dosage: 20 MG, QD
     Route: 048
     Dates: start: 20060328, end: 20070514

REACTIONS (4)
  - IMPAIRED HEALING [None]
  - LASER THERAPY [None]
  - OSTEONECROSIS [None]
  - TOOTH EXTRACTION [None]
